FAERS Safety Report 6198113-X (Version None)
Quarter: 2009Q2

REPORT INFORMATION
  Report Type: 
  Country: None (occurrence: None)
  Receive Date: 20090521
  Receipt Date: 20090518
  Transmission Date: 20091009
  Serious: Yes (Hospitalization, Other)
  Sender: FDA-Public Use
  Company Number: JP-BAYER-200813155BYL

PATIENT
  Age: 53 Year
  Sex: Male
  Weight: 70 kg

DRUGS (13)
  1. NEXAVAR [Suspect]
     Indication: RENAL CELL CARCINOMA STAGE IV
     Dosage: UNIT DOSE: 200 MG
     Route: 048
     Dates: start: 20081017, end: 20081023
  2. NEXAVAR [Suspect]
     Dosage: UNIT DOSE: 200 MG
     Route: 048
     Dates: start: 20081106, end: 20081212
  3. NEXAVAR [Suspect]
     Dosage: UNIT DOSE: 200 MG
     Route: 048
     Dates: start: 20081222, end: 20090130
  4. NEXAVAR [Suspect]
     Dosage: UNIT DOSE: 200 MG
     Route: 048
     Dates: start: 20081213, end: 20081222
  5. NEXAVAR [Suspect]
     Dosage: UNIT DOSE: 200 MG
     Route: 048
     Dates: start: 20080718, end: 20080902
  6. NEXAVAR [Suspect]
     Dosage: UNIT DOSE: 200 MG
     Route: 048
     Dates: start: 20081024, end: 20081105
  7. NEXAVAR [Suspect]
     Dosage: UNIT DOSE: 200 MG
     Route: 048
     Dates: start: 20090310, end: 20090316
  8. HYALEIN [Concomitant]
     Route: 031
  9. MOHRUS TAPE [Concomitant]
     Route: 062
  10. RHYTHMY [Concomitant]
     Route: 048
     Dates: start: 20080717, end: 20080802
  11. LOXONIN [Concomitant]
     Route: 048
     Dates: start: 20080811, end: 20080815
  12. PHELLOBERIN [Concomitant]
     Route: 048
     Dates: start: 20080811, end: 20080815
  13. MYSLEE [Concomitant]
     Route: 048
     Dates: start: 20081024

REACTIONS (5)
  - ALOPECIA [None]
  - DIARRHOEA [None]
  - LIVER DISORDER [None]
  - METASTASES TO SPINE [None]
  - PALMAR-PLANTAR ERYTHRODYSAESTHESIA SYNDROME [None]
